FAERS Safety Report 23342397 (Version 1)
Quarter: 2023Q4

REPORT INFORMATION
  Report Type: Spontaneous
  Country: US (occurrence: None)
  Receive Date: 20231226
  Receipt Date: 20231226
  Transmission Date: 20240109
  Serious: No
  Sender: FDA-Public Use
  Company Number: None

PATIENT

DRUGS (3)
  1. CAFFEINE CITRATE ORAL SOLUTION [Suspect]
     Active Substance: CAFFEINE CITRATE
     Route: 058
  2. CAFFEINE CITRATE ORAL SOLUTION [Suspect]
     Active Substance: CAFFEINE CITRATE
     Route: 048
  3. CAFFEINE CITRATE [Suspect]
     Active Substance: CAFFEINE CITRATE
     Route: 042

REACTIONS (2)
  - Product packaging confusion [None]
  - Circumstance or information capable of leading to medication error [None]
